FAERS Safety Report 15653428 (Version 1)
Quarter: 2018Q4

REPORT INFORMATION
  Report Type: Report from Study
  Country: JP (occurrence: JP)
  Receive Date: 20181124
  Receipt Date: 20181124
  Transmission Date: 20190205
  Serious: Yes (Other)
  Sender: FDA-Public Use
  Company Number: JP-ACCORD-092919

PATIENT
  Age: 36 Year
  Sex: Male

DRUGS (3)
  1. ETHAMBUTOL/ETHAMBUTOL DIHYDROCHLORIDE [Concomitant]
  2. CLARITHROMYCIN/CLARITHROMYCIN LACTOBIONATE [Concomitant]
  3. TACROLIMUS. [Suspect]
     Active Substance: TACROLIMUS
     Indication: IMMUNOSUPPRESSANT DRUG THERAPY

REACTIONS (2)
  - Mycobacterium avium complex infection [Unknown]
  - Atypical mycobacterial infection [Unknown]
